FAERS Safety Report 18173476 (Version 1)
Quarter: 2020Q3

REPORT INFORMATION
  Report Type: Spontaneous
  Country: US (occurrence: US)
  Receive Date: 20200820
  Receipt Date: 20200820
  Transmission Date: 20201103
  Serious: No
  Sender: FDA-Public Use
  Company Number: US-AUROBINDO-AUR-APL-2019-070541

PATIENT
  Age: 40 Year
  Sex: Female

DRUGS (2)
  1. AMETHIA [Concomitant]
     Active Substance: ETHINYL ESTRADIOL\LEVONORGESTREL
     Indication: CONTRACEPTION
     Dosage: UNK
     Route: 065
  2. TERBINAFINE HYDROCHLORIDE TABLETS 250MG [Suspect]
     Active Substance: TERBINAFINE HYDROCHLORIDE
     Indication: FUNGAL INFECTION
     Dosage: 1 DOSAGE FORM, ONCE A DAY (IN THE MORNING)
     Route: 065
     Dates: start: 20190125, end: 20190213

REACTIONS (1)
  - Pruritus [Recovered/Resolved]

NARRATIVE: CASE EVENT DATE: 20190212
